FAERS Safety Report 11869299 (Version 1)
Quarter: 2015Q4

REPORT INFORMATION
  Report Type: Report from Study
  Country: SD (occurrence: SD)
  Receive Date: 20151226
  Receipt Date: 20151226
  Transmission Date: 20160305
  Serious: Yes (Death, Hospitalization)
  Sender: FDA-Public Use
  Company Number: PHHY2015SD169524

PATIENT
  Sex: Female

DRUGS (1)
  1. GLIVEC [Suspect]
     Active Substance: IMATINIB MESYLATE
     Indication: CHRONIC MYELOID LEUKAEMIA
     Dosage: 400 MG, QD
     Route: 065
     Dates: start: 20040524

REACTIONS (2)
  - Hypovolaemic shock [Fatal]
  - Haemoglobin decreased [Fatal]
